FAERS Safety Report 4734948-5 (Version None)
Quarter: 2005Q3

REPORT INFORMATION
  Report Type: 
  Country: None (occurrence: None)
  Receive Date: 20050804
  Receipt Date: 20050630
  Transmission Date: 20060218
  Serious: Yes (Other)
  Sender: FDA-Public Use
  Company Number: US-BRISTOL-MYERS SQUIBB COMPANY-13023015

PATIENT
  Age: 44 Year
  Sex: Male

DRUGS (6)
  1. REYATAZ [Suspect]
     Indication: HIV INFECTION
     Route: 048
     Dates: start: 20031201
  2. ZIDOVUDINE [Concomitant]
  3. EPIVIR [Concomitant]
  4. RENAGEL [Concomitant]
  5. ATACAND [Concomitant]
  6. TOPROL-XL [Concomitant]

REACTIONS (1)
  - LIPOMA OF BREAST [None]
